FAERS Safety Report 12252189 (Version 1)
Quarter: 2016Q2

REPORT INFORMATION
  Report Type: Report from Study
  Country: BR (occurrence: BR)
  Receive Date: 20160411
  Receipt Date: 20160411
  Transmission Date: 20160815
  Serious: Yes (Other)
  Sender: FDA-Public Use
  Company Number: PHHY2013BR046443

PATIENT
  Age: 55 Year
  Sex: Female
  Weight: 62 kg

DRUGS (15)
  1. NEXIUM [Concomitant]
     Active Substance: ESOMEPRAZOLE MAGNESIUM
     Indication: OESOPHAGEAL DISORDER
     Dosage: UNK
     Route: 065
  2. NATIFA [Concomitant]
     Indication: PRODUCT USED FOR UNKNOWN INDICATION
     Dosage: UNK
     Route: 065
  3. FORASEQ [Concomitant]
     Active Substance: BUDESONIDE\FORMOTEROL FUMARATE
     Indication: ASTHMA
     Dosage: UNK
     Route: 065
  4. VELIJA [Concomitant]
     Active Substance: DULOXETINE HYDROCHLORIDE
     Indication: PAIN
     Dosage: 50 MG, QD
     Route: 048
     Dates: start: 20160323
  5. GABAPENTIN. [Concomitant]
     Active Substance: GABAPENTIN
     Indication: TRIGEMINAL NEURALGIA
     Dosage: 1200 MG, BID
     Route: 048
  6. TEGRETOL [Concomitant]
     Active Substance: CARBAMAZEPINE
     Indication: PRODUCT USED FOR UNKNOWN INDICATION
     Dosage: UNK
     Route: 065
  7. BUPROPION. [Concomitant]
     Active Substance: BUPROPION
     Indication: DEPRESSION
     Dosage: 150 MG, QD
     Route: 048
  8. AMPLICTIL [Concomitant]
     Active Substance: CHLORPROMAZINE HYDROCHLORIDE
     Indication: INSOMNIA
     Dosage: UNK
     Route: 065
  9. CYMBALTA [Concomitant]
     Active Substance: DULOXETINE HYDROCHLORIDE
     Indication: DEPRESSION
     Dosage: UNK
     Route: 065
  10. QUETIAPINE. [Concomitant]
     Active Substance: QUETIAPINE
     Indication: DEPRESSION
     Dosage: 0.5 MG, QD
     Route: 048
  11. RIVOTRIL [Concomitant]
     Active Substance: CLONAZEPAM
     Indication: DEPRESSION
     Dosage: 2 MG, QD
     Route: 048
  12. MORPHINE [Concomitant]
     Active Substance: MORPHINE
     Indication: TRIGEMINAL NEURALGIA
     Dosage: UNK
     Route: 065
  13. GILENYA [Suspect]
     Active Substance: FINGOLIMOD HYDROCHLORIDE
     Indication: MULTIPLE SCLEROSIS
     Dosage: 0.5 MG, QD
     Route: 048
     Dates: start: 2014
  14. CODATEN [Concomitant]
     Active Substance: CODEINE PHOSPHATE\DICLOFENAC SODIUM
     Indication: TRIGEMINAL NEURALGIA
     Dosage: UNK
     Route: 065
  15. AMATO [Concomitant]
     Active Substance: TOPIRAMATE
     Indication: PAIN
     Dosage: 100 MG, BID
     Route: 048
     Dates: start: 20160323

REACTIONS (13)
  - Urinary tract infection [Recovered/Resolved]
  - Muscular weakness [Not Recovered/Not Resolved]
  - Gait disturbance [Not Recovered/Not Resolved]
  - Pain in extremity [Recovering/Resolving]
  - Arthralgia [Unknown]
  - Multiple sclerosis relapse [Unknown]
  - Peripheral swelling [Not Recovered/Not Resolved]
  - Visual acuity reduced [Recovered/Resolved]
  - Immune system disorder [Not Recovered/Not Resolved]
  - Pain [Not Recovered/Not Resolved]
  - Dyspnoea [Recovering/Resolving]
  - Spinal muscular atrophy [Not Recovered/Not Resolved]
  - Malaise [Recovering/Resolving]

NARRATIVE: CASE EVENT DATE: 20160314
